FAERS Safety Report 8839408 (Version 1)
Quarter: 2012Q4

REPORT INFORMATION
  Report Type: Spontaneous
  Country: US (occurrence: None)
  Receive Date: 20121012
  Receipt Date: 20121012
  Transmission Date: 20130627
  Serious: Yes (Death, Hospitalization, Other)
  Sender: FDA-Public Use
  Company Number: None

PATIENT
  Sex: Female
  Weight: 50.8 kg

DRUGS (1)
  1. CORTISONE [Suspect]
     Dosage: 1 injection
     Dates: start: 20120815, end: 20120816

REACTIONS (4)
  - Headache [None]
  - Nausea [None]
  - Confusional state [None]
  - Impaired work ability [None]
